FAERS Safety Report 19693780 (Version 1)
Quarter: 2021Q3

REPORT INFORMATION
  Report Type: Spontaneous
  Country: US (occurrence: US)
  Receive Date: 20210813
  Receipt Date: 20210813
  Transmission Date: 20211014
  Serious: No
  Sender: FDA-Public Use
  Company Number: US-DRREDDYS-SPO/USA/21/0138849

PATIENT
  Age: 14 Year
  Sex: Male

DRUGS (1)
  1. ZENATANE [Suspect]
     Active Substance: ISOTRETINOIN
     Indication: PRODUCT USED FOR UNKNOWN INDICATION
     Dosage: RMA ISSUE DATES: 10 MARCH 2021 12:00:00 AM, 14 APRIL 2021 12:00:00 AM, 17 MAY 2021 12:00:00 AM, 21 J

REACTIONS (1)
  - Therapy cessation [Unknown]
